FAERS Safety Report 9914100 (Version 1)
Quarter: 2014Q1

REPORT INFORMATION
  Report Type: Spontaneous
  Country: US (occurrence: US)
  Receive Date: 20140220
  Receipt Date: 20140220
  Transmission Date: 20141002
  Serious: No
  Sender: FDA-Public Use
  Company Number: US-MALLINCKRODT-T201301545

PATIENT
  Sex: 0

DRUGS (2)
  1. TECHNESCAN HDP [Suspect]
     Dosage: 20 MCI, SINGLE
  2. TECHNETIUM TC 99M [Suspect]
     Dosage: UNK

REACTIONS (1)
  - Wrong drug administered [Unknown]
